FAERS Safety Report 19035661 (Version 4)
Quarter: 2021Q2

REPORT INFORMATION
  Report Type: Spontaneous
  Country: MX (occurrence: MX)
  Receive Date: 20210320
  Receipt Date: 20210618
  Transmission Date: 20210717
  Serious: Yes (Other)
  Sender: FDA-Public Use
  Company Number: MX-UCBSA-2021010832

PATIENT
  Age: 5 Month
  Sex: Male
  Weight: 6.3 kg

DRUGS (7)
  1. VIMPAT [Suspect]
     Active Substance: LACOSAMIDE
     Indication: INFANTILE SPASMS
     Dosage: 2 MILLILITER (10 MG/ML), 2X/DAY (BID)
     Dates: start: 20210302
  2. ATEMPERATOR S [Concomitant]
     Dosage: 1.8 MILLILITER, 2X/DAY (BID)
     Route: 048
  3. ATEMPERATOR S [Concomitant]
     Indication: PRODUCT USED FOR UNKNOWN INDICATION
     Dosage: 200MG / 5ML , 1 MILLILITER, 2X/DAY (BID)
     Route: 048
  4. VIMPAT [Suspect]
     Active Substance: LACOSAMIDE
     Indication: EPILEPSY
     Dosage: 3.5 MILLIGRAM, 2X/DAY (BID)
  5. MAXIM [CEFUROXIME] [Concomitant]
     Indication: GASTRIC DISORDER
     Dosage: 10 MILLIGRAM, 2X/DAY (BID)
  6. UNAMOL [Concomitant]
     Indication: PRODUCT USED FOR UNKNOWN INDICATION
  7. NEXIUM I.V. [Concomitant]
     Active Substance: ESOMEPRAZOLE SODIUM
     Indication: PRODUCT USED FOR UNKNOWN INDICATION

REACTIONS (9)
  - Seizure [Recovering/Resolving]
  - Sleep disorder [Not Recovered/Not Resolved]
  - Off label use [Unknown]
  - Gastrooesophageal reflux disease [Not Recovered/Not Resolved]
  - Tremor [Recovered/Resolved]
  - Abnormal behaviour [Unknown]
  - Feeling abnormal [Unknown]
  - Increased appetite [Unknown]
  - Irritability [Recovering/Resolving]

NARRATIVE: CASE EVENT DATE: 20210302
